FAERS Safety Report 21824231 (Version 1)
Quarter: 2023Q1

REPORT INFORMATION
  Report Type: Spontaneous
  Country: US (occurrence: None)
  Receive Date: 20230104
  Receipt Date: 20230104
  Transmission Date: 20230417
  Serious: Yes (Death)
  Sender: FDA-Public Use
  Company Number: None

PATIENT
  Age: 71 Year
  Sex: Male

DRUGS (1)
  1. METHOTREXATE [Suspect]
     Active Substance: METHOTREXATE

REACTIONS (12)
  - Respiratory failure [None]
  - Pyrexia [None]
  - Dyspnoea [None]
  - Cough [None]
  - Condition aggravated [None]
  - Lung opacity [None]
  - Lung consolidation [None]
  - Drug ineffective [None]
  - Oxygen consumption increased [None]
  - Pneumonitis [None]
  - General physical health deterioration [None]
  - Pulmonary toxicity [None]
